FAERS Safety Report 9076698 (Version 1)
Quarter: 2013Q1

REPORT INFORMATION
  Report Type: Report from Study
  Country: US (occurrence: US)
  Receive Date: 20130129
  Receipt Date: 20130129
  Transmission Date: 20140127
  Serious: No
  Sender: FDA-Public Use
  Company Number: US-ABBOTT-12P-163-0932140-00

PATIENT
  Age: 17 None
  Sex: Female
  Weight: 50.85 kg

DRUGS (8)
  1. HUMIRA 40 MG/0.8 ML PEN [Suspect]
     Indication: CROHN^S DISEASE
     Dosage: LOADING DOSE, ONCE EVERY TWO WEEKS
     Route: 058
     Dates: start: 20120423
  2. HUMIRA 40 MG/0.8 ML PEN [Suspect]
     Dates: start: 20120516
  3. HUMIRA 40 MG/0.8 ML PEN [Suspect]
     Dates: start: 20120530
  4. CALCIUM+VIT D [Concomitant]
     Indication: MINERAL SUPPLEMENTATION
     Dosage: 600 MG QD
  5. PREDNISONE [Concomitant]
     Indication: CROHN^S DISEASE
     Dosage: 5 MG QD
  6. IRON [Concomitant]
     Indication: MINERAL SUPPLEMENTATION
  7. VITAMIN C [Concomitant]
     Indication: VITAMIN SUPPLEMENTATION
     Dosage: 500 MG QD
  8. LIDOCAINE [Concomitant]
     Indication: PRODUCT USED FOR UNKNOWN INDICATION

REACTIONS (4)
  - Pruritus [Not Recovered/Not Resolved]
  - Pruritus [Not Recovered/Not Resolved]
  - Alopecia [Not Recovered/Not Resolved]
  - Herpes zoster [Recovered/Resolved]
